FAERS Safety Report 9102919 (Version 1)
Quarter: 2013Q1

REPORT INFORMATION
  Report Type: Spontaneous
  Country: ES (occurrence: ES)
  Receive Date: 20130218
  Receipt Date: 20130218
  Transmission Date: 20140127
  Serious: Yes (Other)
  Sender: FDA-Public Use
  Company Number: ES-ROCHE-1190031

PATIENT
  Age: 49 Year
  Sex: Female

DRUGS (6)
  1. PEGASYS [Suspect]
     Indication: CHRONIC HEPATITIS C
     Route: 058
     Dates: start: 20121130, end: 20121207
  2. RIBAVIRIN [Suspect]
     Indication: CHRONIC HEPATITIS C
     Dosage: 400 MG TO 600 MG
     Route: 048
     Dates: start: 20121130, end: 20121207
  3. INCIVO [Suspect]
     Indication: CHRONIC HEPATITIS C
     Route: 048
     Dates: start: 20121130, end: 20121207
  4. LORAZEPAM [Concomitant]
     Route: 048
  5. VALSARTAN [Concomitant]
     Route: 048
  6. PANTOPRAZOL [Concomitant]
     Route: 048

REACTIONS (2)
  - Vomiting [Recovering/Resolving]
  - Abdominal discomfort [Recovering/Resolving]
